FAERS Safety Report 19779191 (Version 3)
Quarter: 2021Q3

REPORT INFORMATION
  Report Type: Spontaneous
  Country: IS (occurrence: IS)
  Receive Date: 20210902
  Receipt Date: 20210918
  Transmission Date: 20211014
  Serious: Yes (Life-Threatening, Hospitalization, Other)
  Sender: FDA-Public Use
  Company Number: IS-GALDERMA-IS2021015839

PATIENT

DRUGS (2)
  1. SOOLANTRA [Suspect]
     Active Substance: IVERMECTIN
     Indication: COVID-19
     Dosage: 60 TO 120 GM, 30G PER WEEK
     Route: 048
     Dates: start: 20210817, end: 20210822
  2. DOXYCYCLIN [DOXYCYCLINE] [Concomitant]
     Active Substance: DOXYCYCLINE
     Indication: COVID-19
     Dosage: 200 MILLIGRAM, BID
     Route: 065
     Dates: start: 20210817, end: 20210822

REACTIONS (8)
  - Intentional product use issue [Recovered/Resolved]
  - Intentional product misuse [Recovered/Resolved]
  - Depressed level of consciousness [Recovered/Resolved]
  - Clonus [Recovered/Resolved]
  - Nystagmus [Recovered/Resolved]
  - Dysstasia [Recovering/Resolving]
  - Overdose [Recovered/Resolved]
  - Coma scale abnormal [Recovering/Resolving]

NARRATIVE: CASE EVENT DATE: 20210817
